FAERS Safety Report 7314772-X (Version None)
Quarter: 2011Q1

REPORT INFORMATION
  Report Type: 
  Country: None (occurrence: None)
  Receive Date: 20110225
  Receipt Date: 20101228
  Transmission Date: 20110831
  Serious: No
  Sender: FDA-Public Use
  Company Number: US-MYLANLABS-2010S1022113

PATIENT
  Age: 20 Year
  Sex: Male
  Weight: 72.58 kg

DRUGS (2)
  1. AMNESTEEM [Suspect]
     Indication: ACNE CYSTIC
     Dates: start: 20100623
  2. AMNESTEEM [Suspect]
     Dates: end: 20100920

REACTIONS (1)
  - ABDOMINAL PAIN [None]
